FAERS Safety Report 15204178 (Version 1)
Quarter: 2018Q3

REPORT INFORMATION
  Report Type: Spontaneous
  Country: FR (occurrence: FR)
  Receive Date: 20180726
  Receipt Date: 20180726
  Transmission Date: 20181010
  Serious: Yes (Hospitalization, Other)
  Sender: FDA-Public Use
  Company Number: FR-GLAXOSMITHKLINE-FR2018130101

PATIENT
  Age: 66 Year
  Sex: Female

DRUGS (3)
  1. CLAMOXYL (AMOXICILLIN TRIHYDRATE) [Suspect]
     Active Substance: AMOXICILLIN
     Indication: MENINGITIS
     Dosage: 12 G, QD
     Route: 048
     Dates: start: 20150721, end: 20150722
  2. ZOVIRAX [Suspect]
     Active Substance: ACYCLOVIR
     Indication: MENINGITIS
     Dosage: 1800 MG, QD
     Route: 048
     Dates: start: 20150721, end: 20150722
  3. GENTAMICINE [Suspect]
     Active Substance: GENTAMICIN
     Indication: MENINGITIS
     Dosage: UNK
     Route: 042
     Dates: start: 20150721, end: 20150722

REACTIONS (2)
  - Acute kidney injury [Recovered/Resolved]
  - Oliguria [Recovered/Resolved]

NARRATIVE: CASE EVENT DATE: 20150723
